FAERS Safety Report 4440897-2 (Version None)
Quarter: 2004Q3

REPORT INFORMATION
  Report Type: 
  Country: None (occurrence: None)
  Receive Date: 20040728
  Receipt Date: 20040423
  Transmission Date: 20050211
  Serious: No
  Sender: FDA-Public Use
  Company Number: USA040465830

PATIENT
  Sex: Female

DRUGS (2)
  1. STRATTERA [Suspect]
     Dosage: 25 MG DAY
     Dates: start: 20040421
  2. VITAMIN B-12 [Concomitant]

REACTIONS (3)
  - EXCITABILITY [None]
  - FATIGUE [None]
  - FEELING JITTERY [None]
